FAERS Safety Report 18158024 (Version 1)
Quarter: 2020Q3

REPORT INFORMATION
  Report Type: Spontaneous
  Country: US (occurrence: US)
  Receive Date: 20200817
  Receipt Date: 20200817
  Transmission Date: 20201103
  Serious: No
  Sender: FDA-Public Use
  Company Number: US-MEDEXUS PHARMA, INC.-2020MED00017

PATIENT
  Age: 67 Year
  Sex: Female
  Weight: 104.31 kg

DRUGS (1)
  1. RASUVO [Suspect]
     Active Substance: METHOTREXATE SODIUM
     Indication: RHEUMATOID ARTHRITIS
     Dosage: 20 MG, 1X/WEEK ON MONDAYS INJECTED INTO THIGH
     Dates: start: 2017

REACTIONS (3)
  - Upper respiratory tract infection [Recovering/Resolving]
  - Secretion discharge [Not Recovered/Not Resolved]
  - Feeling abnormal [Recovering/Resolving]

NARRATIVE: CASE EVENT DATE: 202001
